FAERS Safety Report 10085468 (Version 2)
Quarter: 2014Q2

REPORT INFORMATION
  Report Type: Spontaneous
  Country: US (occurrence: US)
  Receive Date: 20140418
  Receipt Date: 20140429
  Transmission Date: 20141212
  Serious: Yes (Disabling, Other)
  Sender: FDA-Public Use
  Company Number: US-MERCK-1404USA009128

PATIENT
  Sex: Female

DRUGS (9)
  1. JANUVIA [Suspect]
     Indication: DIABETES MELLITUS
     Dosage: 50 MG, QD
     Route: 048
     Dates: end: 201312
  2. AMLODIPINE [Concomitant]
     Dosage: UNK
     Dates: end: 201312
  3. STRATTERA [Concomitant]
     Dosage: UNK
     Dates: end: 201312
  4. SINGULAIR [Concomitant]
     Dosage: UNK
     Dates: end: 201312
  5. ZYRTEC [Concomitant]
     Dosage: UNK
     Dates: end: 201312
  6. VENTOLIN HFA [Concomitant]
     Dosage: UNK
     Dates: end: 201312
  7. DIAMOX [Concomitant]
     Dosage: UNK
     Dates: end: 201312
  8. SERTRALINE HYDROCHLORIDE [Concomitant]
     Dosage: UNK
     Dates: end: 201312
  9. RHINOCORT (BECLOMETHASONE DIPROPIONATE) [Concomitant]
     Dosage: UNK
     Dates: end: 201312

REACTIONS (3)
  - Dyspnoea [Recovering/Resolving]
  - Generalised oedema [Recovering/Resolving]
  - Lethargy [Recovering/Resolving]
